FAERS Safety Report 18315559 (Version 2)
Quarter: 2020Q3

REPORT INFORMATION
  Report Type: Report from Study
  Country: None (occurrence: US)
  Receive Date: 20200926
  Receipt Date: 20200929
  Transmission Date: 20201103
  Serious: Yes (Death, Other)
  Sender: FDA-Public Use
  Company Number: US-ABBVIE-20K-163-3583971-00

PATIENT
  Sex: Male
  Weight: 68.1 kg

DRUGS (1)
  1. CREON [Suspect]
     Active Substance: PANCRELIPASE AMYLASE\PANCRELIPASE LIPASE\PANCRELIPASE PROTEASE
     Indication: PANCREATICODUODENECTOMY
     Dosage: 2 CAPSULES PER MEAL AND 1 CAPSULE PER SNACK
     Route: 048
     Dates: start: 201912, end: 202005

REACTIONS (4)
  - Hospice care [Unknown]
  - Pancreatic carcinoma stage IV [Fatal]
  - Intestinal obstruction [Not Recovered/Not Resolved]
  - Hypophagia [Unknown]

NARRATIVE: CASE EVENT DATE: 2020
